FAERS Safety Report 11694419 (Version 2)
Quarter: 2015Q4

REPORT INFORMATION
  Report Type: Spontaneous
  Country: US (occurrence: US)
  Receive Date: 20151103
  Receipt Date: 20151202
  Transmission Date: 20160304
  Serious: Yes (Other)
  Sender: FDA-Public Use
  Company Number: US-BAYER-2015-453842

PATIENT
  Age: 62 Year
  Sex: Male
  Weight: 92.63 kg

DRUGS (3)
  1. BAYER GENUINE ASPIRIN [Suspect]
     Active Substance: ASPIRIN
     Indication: NASOPHARYNGITIS
     Dosage: NK UNK, PRN
     Route: 048
  2. ALEVE [Suspect]
     Active Substance: NAPROXEN SODIUM
     Indication: SCIATICA
     Dosage: 1 DF, BID
     Route: 048
     Dates: start: 20151023, end: 20151026
  3. ALEVE [Suspect]
     Active Substance: NAPROXEN SODIUM
     Dosage: UNK UNK, PRN
     Route: 048
     Dates: start: 201510, end: 201511

REACTIONS (4)
  - Product use issue [None]
  - Drug ineffective [None]
  - Epistaxis [None]
  - Drug ineffective [None]

NARRATIVE: CASE EVENT DATE: 201510
